FAERS Safety Report 5156748-7 (Version None)
Quarter: 2006Q4

REPORT INFORMATION
  Report Type: 
  Country: None (occurrence: None)
  Receive Date: 20061122
  Receipt Date: 20061114
  Transmission Date: 20070319
  Serious: Yes (Death, Other)
  Sender: FDA-Public Use
  Company Number: US-MERCK-0611USA04795

PATIENT
  Age: 33 Year
  Sex: Male

DRUGS (7)
  1. PRIMAXIN [Suspect]
     Indication: PNEUMONIA KLEBSIELLA
     Route: 042
  2. PRIMAXIN [Suspect]
     Indication: SEPSIS
     Route: 042
  3. TIGECYCLINE [Suspect]
     Indication: PERITONITIS
     Route: 065
  4. TIGECYCLINE [Suspect]
     Route: 065
  5. LINEZOLID [Concomitant]
     Route: 065
  6. PREDNISONE TAB [Concomitant]
     Indication: PERITONITIS
     Route: 065
  7. TACROLIMUS [Concomitant]
     Route: 065

REACTIONS (4)
  - DRUG INEFFECTIVE [None]
  - MULTI-ORGAN FAILURE [None]
  - PANCYTOPENIA [None]
  - PNEUMONIA KLEBSIELLA [None]
